FAERS Safety Report 4655529-8 (Version None)
Quarter: 2005Q2

REPORT INFORMATION
  Report Type: 
  Country: None (occurrence: None)
  Receive Date: 20050506
  Receipt Date: 20050214
  Transmission Date: 20051028
  Serious: Yes (Other)
  Sender: FDA-Public Use
  Company Number: DE-AMGEN-UK114721

PATIENT
  Age: 43 Year
  Sex: Female
  Weight: 63 kg

DRUGS (4)
  1. NEULASTA [Suspect]
     Indication: CHEMOTHERAPY
     Route: 065
     Dates: start: 20041120
  2. CISPLATIN [Concomitant]
     Route: 065
     Dates: start: 20041119
  3. GEMCITABINE [Concomitant]
     Route: 065
     Dates: start: 20041119
  4. EPOETIN ALFA [Concomitant]
     Route: 065
     Dates: start: 20041121

REACTIONS (6)
  - BLOOD ALKALINE PHOSPHATASE INCREASED [None]
  - BLOOD LACTATE DEHYDROGENASE INCREASED [None]
  - BONE PAIN [None]
  - CARBOHYDRATE ANTIGEN 15-3 INCREASED [None]
  - METASTASES TO BONE MARROW [None]
  - NEUTROPHIL COUNT DECREASED [None]
